FAERS Safety Report 5796353-2 (Version None)
Quarter: 2008Q2

REPORT INFORMATION
  Report Type: 
  Country: None (occurrence: None)
  Receive Date: 20080618
  Receipt Date: 20070802
  Transmission Date: 20081010
  Serious: Yes (Other)
  Sender: FDA-Public Use
  Company Number: 200714770US

PATIENT
  Age: 49 Year
  Sex: Female

DRUGS (4)
  1. LANTUS [Suspect]
     Indication: TYPE 2 DIABETES MELLITUS
     Dosage: 24 U QD
  2. OPTICLIK [Suspect]
     Indication: TYPE 2 DIABETES MELLITUS
  3. AMARYL [Concomitant]
  4. METFORMIN HCL [Concomitant]

REACTIONS (1)
  - HYPERGLYCAEMIA [None]
